FAERS Safety Report 21365559 (Version 1)
Quarter: 2022Q3

REPORT INFORMATION
  Report Type: Spontaneous
  Country: CN (occurrence: CN)
  Receive Date: 20220922
  Receipt Date: 20220922
  Transmission Date: 20221027
  Serious: Yes (Other)
  Sender: FDA-Public Use
  Company Number: CN-MSNLABS-2022MSNLIT01098

PATIENT

DRUGS (4)
  1. CAPECITABINE [Suspect]
     Active Substance: CAPECITABINE
     Indication: Metastases to liver
     Dosage: 1.5 G TWICE A DAY ON DAYS 1-14
     Route: 048
  2. CAPECITABINE [Suspect]
     Active Substance: CAPECITABINE
     Indication: HER2 positive gastric cancer
  3. HERCEPTIN [Suspect]
     Active Substance: TRASTUZUMAB
     Indication: Metastases to liver
     Dosage: 550 MG ON DAY 1
     Route: 065
  4. HERCEPTIN [Suspect]
     Active Substance: TRASTUZUMAB
     Indication: HER2 positive gastric cancer

REACTIONS (1)
  - Disease progression [Unknown]
